FAERS Safety Report 7424966-0 (Version None)
Quarter: 2011Q2

REPORT INFORMATION
  Report Type: 
  Country: None (occurrence: None)
  Receive Date: 20110419
  Receipt Date: 20101025
  Transmission Date: 20111010
  Serious: Yes (Hospitalization, Other)
  Sender: FDA-Public Use
  Company Number: US-BAYER-201034811NA

PATIENT
  Age: 16 Year
  Sex: Female
  Weight: 67 kg

DRUGS (7)
  1. YASMIN [Suspect]
     Indication: POLYCYSTIC OVARIES
  2. YAZ [Suspect]
     Indication: ACNE
     Dosage: UNK
     Dates: start: 19990101, end: 20060101
  3. YASMIN [Suspect]
     Indication: ACNE
     Dosage: UNK
     Dates: start: 19990101, end: 20060101
  4. YAZ [Suspect]
     Indication: MENSTRUAL CYCLE MANAGEMENT
  5. YASMIN [Suspect]
     Indication: MENSTRUAL CYCLE MANAGEMENT
  6. YAZ [Suspect]
     Indication: POLYCYSTIC OVARIES
  7. PRILOSEC [Concomitant]
     Dosage: UNK
     Dates: start: 20040601

REACTIONS (3)
  - CHOLECYSTITIS CHRONIC [None]
  - BILIARY DYSKINESIA [None]
  - GALLBLADDER DISORDER [None]
